FAERS Safety Report 6787509-0 (Version None)
Quarter: 2010Q2

REPORT INFORMATION
  Report Type: 
  Country: None (occurrence: None)
  Receive Date: 20100623
  Receipt Date: 20071002
  Transmission Date: 20101027
  Serious: Yes (Other)
  Sender: FDA-Public Use
  Company Number: US-PFIZER INC-2007007226

PATIENT
  Sex: Male
  Weight: 109 kg

DRUGS (16)
  1. DEPO-PROVERA SUSPENSION/INJ [Suspect]
     Indication: SEXUAL ABUSE
     Dosage: 1ST INJECTION
     Route: 030
     Dates: start: 19840620, end: 19840620
  2. DEPO-PROVERA SUSPENSION/INJ [Suspect]
     Dosage: LAST INJECTION
     Route: 030
     Dates: start: 19861201, end: 19861201
  3. METFORMIN HCL [Concomitant]
     Indication: DIABETES MELLITUS
  4. WELLBUTRIN [Concomitant]
  5. ASPIRIN [Concomitant]
  6. GLIPIZIDE [Concomitant]
  7. LEXAPRO [Concomitant]
  8. CARTIA XT [Concomitant]
     Indication: HYPERTENSION
  9. ACIPHEX [Concomitant]
  10. AVANDIA [Concomitant]
  11. CLONAZEPAM [Concomitant]
  12. LISINOPRIL [Concomitant]
  13. REGLAN [Concomitant]
  14. ADVAIR DISKUS 100/50 [Concomitant]
     Indication: ASTHMA
  15. SINGULAIR ^DIECKMANN^ [Concomitant]
     Indication: ASTHMA
  16. NASONEX [Concomitant]

REACTIONS (4)
  - INCREASED APPETITE [None]
  - PROSTATIC DISORDER [None]
  - THERAPEUTIC PRODUCT INEFFECTIVE FOR UNAPPROVED INDICATION [None]
  - WEIGHT INCREASED [None]
